FAERS Safety Report 5868118-4 (Version None)
Quarter: 2008Q3

REPORT INFORMATION
  Report Type: 
  Country: None (occurrence: None)
  Receive Date: 20080902
  Receipt Date: 20080703
  Transmission Date: 20090109
  Serious: No
  Sender: FDA-Public Use
  Company Number: US-ABBOTT-08P-163-0461387-00

PATIENT
  Sex: Female
  Weight: 79.904 kg

DRUGS (5)
  1. DEPAKOTE ER [Suspect]
     Indication: BIPOLAR DISORDER
     Route: 048
     Dates: start: 20060221, end: 20071201
  2. DEPAKOTE ER [Suspect]
     Dosage: 4 TABS, AT BEDTIME
     Route: 048
     Dates: start: 20080623
  3. LAMOTRIGINE [Concomitant]
     Indication: BIPOLAR DISORDER
     Route: 048
     Dates: start: 20070101, end: 20071201
  4. BUPROPION HCL [Concomitant]
     Indication: BIPOLAR DISORDER
     Route: 048
  5. ARIPIPRAZOLE [Concomitant]
     Indication: BIPOLAR DISORDER
     Route: 048
     Dates: end: 20071201

REACTIONS (3)
  - HEART RATE IRREGULAR [None]
  - VOMITING [None]
  - WEIGHT INCREASED [None]
